FAERS Safety Report 6031742-2 (Version None)
Quarter: 2009Q1

REPORT INFORMATION
  Report Type: 
  Country: None (occurrence: None)
  Receive Date: 20090107
  Receipt Date: 20090107
  Transmission Date: 20090719
  Serious: Yes (Other)
  Sender: FDA-Public Use
  Company Number: None

PATIENT
  Sex: Male

DRUGS (3)
  1. STRATTERA [Suspect]
     Dates: start: 20070101
  2. CONCERTA [Suspect]
     Dates: start: 20081101
  3. METHYLIN ER [Suspect]
     Dates: start: 20080801

REACTIONS (3)
  - ABDOMINAL PAIN UPPER [None]
  - DRUG INEFFECTIVE [None]
  - NAUSEA [None]
